FAERS Safety Report 6546191-8 (Version None)
Quarter: 2010Q1

REPORT INFORMATION
  Report Type: 
  Country: None (occurrence: None)
  Receive Date: 20100119
  Receipt Date: 20100104
  Transmission Date: 20100710
  Serious: Yes (Hospitalization)
  Sender: FDA-Public Use
  Company Number: 2009AC000308

PATIENT
  Age: 74 Year
  Sex: Female

DRUGS (31)
  1. DIGOXIN [Suspect]
     Dosage: .125 MG;PO
     Route: 048
     Dates: start: 20080414
  2. ASPIRIN [Concomitant]
  3. ZETIA [Concomitant]
  4. ZOCOR [Concomitant]
  5. LASIX [Concomitant]
  6. INSULIN [Concomitant]
  7. PRINIVIL [Concomitant]
  8. PREDNISONE [Concomitant]
  9. ALBUTEROL [Concomitant]
  10. LOVENOX [Concomitant]
  11. ATROVENT [Concomitant]
  12. CALAN [Concomitant]
  13. COUMADIN [Concomitant]
  14. LEVAQUIN [Concomitant]
  15. PROTONIX [Concomitant]
  16. POTASSIUM [Concomitant]
  17. ADVAIR [Concomitant]
  18. MUCINEX [Concomitant]
  19. VERAPAMIL [Concomitant]
  20. IRON [Concomitant]
  21. LISINOPRIL [Concomitant]
  22. PLAVIX [Concomitant]
  23. XANAX [Concomitant]
  24. CATAPRES [Concomitant]
  25. TYLENOL-500 [Concomitant]
  26. PROTONIX [Concomitant]
  27. VYTORIN [Concomitant]
  28. VERAPAMIL [Concomitant]
  29. ALBUTEROL [Concomitant]
  30. PREDNISONE [Concomitant]
  31. HUMIBID [Concomitant]

REACTIONS (24)
  - ALBUMIN URINE PRESENT [None]
  - ANAEMIA [None]
  - ATRIAL FIBRILLATION [None]
  - BLOOD CHOLESTEROL INCREASED [None]
  - BRADYARRHYTHMIA [None]
  - CARDIAC FAILURE CONGESTIVE [None]
  - CARDIOMYOPATHY [None]
  - CHOLELITHIASIS [None]
  - CHRONIC OBSTRUCTIVE PULMONARY DISEASE [None]
  - CONDITION AGGRAVATED [None]
  - CORONARY ARTERY DISEASE [None]
  - DEPRESSION [None]
  - DIABETES MELLITUS [None]
  - ECONOMIC PROBLEM [None]
  - HYPERTENSION [None]
  - HYPOVITAMINOSIS [None]
  - INJURY [None]
  - INTRA-ABDOMINAL HAEMATOMA [None]
  - PANCREATITIS [None]
  - PNEUMONIA [None]
  - PULMONARY HYPERTENSION [None]
  - SICK SINUS SYNDROME [None]
  - SLEEP APNOEA SYNDROME [None]
  - THERAPEUTIC AGENT TOXICITY [None]
